FAERS Safety Report 14870463 (Version 1)
Quarter: 2018Q2

REPORT INFORMATION
  Report Type: Spontaneous
  Country: AT (occurrence: AT)
  Receive Date: 20180509
  Receipt Date: 20180509
  Transmission Date: 20180711
  Serious: Yes (Death)
  Sender: FDA-Public Use
  Company Number: AT-PFIZER INC-2018185854

PATIENT
  Age: 57 Year

DRUGS (2)
  1. EPANUTIN [Suspect]
     Active Substance: PHENYTOIN SODIUM
     Indication: EPILEPSY
     Dosage: 300 MG, UNK
     Route: 042
     Dates: start: 20180327, end: 20180327
  2. TEMESTA /00273201/ [Concomitant]
     Active Substance: LORAZEPAM
     Indication: EPILEPSY
     Dosage: 3 MG, UNK

REACTIONS (1)
  - Cardiac arrest [Fatal]

NARRATIVE: CASE EVENT DATE: 20180327
